FAERS Safety Report 25382815 (Version 5)
Quarter: 2025Q3

REPORT INFORMATION
  Report Type: Report from Study
  Country: US (occurrence: US)
  Receive Date: 20250602
  Receipt Date: 20250703
  Transmission Date: 20251021
  Serious: Yes (Hospitalization, Other)
  Sender: UCB
  Company Number: US-UCBSA-2025006615

PATIENT
  Age: 19 Year
  Sex: Male
  Weight: 44 kg

DRUGS (10)
  1. FINTEPLA [Suspect]
     Active Substance: FENFLURAMINE
     Indication: Lennox-Gastaut syndrome
     Dates: start: 20241101
  2. FINTEPLA [Suspect]
     Active Substance: FENFLURAMINE
     Dosage: 6 MILLILITER, 2X/DAY (BID)
     Route: 048
     Dates: start: 20241213
  3. FINTEPLA [Suspect]
     Active Substance: FENFLURAMINE
     Dosage: 6 MILLILITER, 2X/DAY (BID)
  4. FINTEPLA [Suspect]
     Active Substance: FENFLURAMINE
  5. BANZEL [Concomitant]
     Active Substance: RUFINAMIDE
     Indication: Product used for unknown indication
  6. FYCOMPA [Concomitant]
     Active Substance: PERAMPANEL
     Indication: Product used for unknown indication
     Dosage: 8 MILLIGRAM, ONCE DAILY (QD)
  7. LAMOTRIGINE [Concomitant]
     Active Substance: LAMOTRIGINE
     Indication: Product used for unknown indication
  8. CLONIDINE [Concomitant]
     Active Substance: CLONIDINE
     Indication: Product used for unknown indication
     Dosage: 0.2 MILLIGRAM, ONCE DAILY (QD)
  9. PENTASA [Concomitant]
     Active Substance: MESALAMINE
     Indication: Product used for unknown indication
  10. ONFI [Concomitant]
     Active Substance: CLOBAZAM
     Indication: Epilepsy
     Dosage: 20 MILLIGRAM, 2X/DAY (BID) G-TUBE

REACTIONS (24)
  - Pneumonia [Recovered/Resolved]
  - Tricuspid valve incompetence [Unknown]
  - Pyrexia [Not Recovered/Not Resolved]
  - Staphylococcal infection [Not Recovered/Not Resolved]
  - Mitral valve incompetence [Unknown]
  - Cortical visual impairment [Unknown]
  - Pulmonary valve incompetence [Unknown]
  - Sleep apnoea syndrome [Not Recovered/Not Resolved]
  - Mitral valve prolapse [Unknown]
  - Blood sodium increased [Not Recovered/Not Resolved]
  - Urinary tract infection [Not Recovered/Not Resolved]
  - Dyschezia [Not Recovered/Not Resolved]
  - Aortic dilatation [Unknown]
  - Dyspnoea [Unknown]
  - Dermatitis diaper [Unknown]
  - Fungal infection [Unknown]
  - Blood pressure increased [Unknown]
  - Scoliosis [Unknown]
  - Left ventricular hypertrophy [Unknown]
  - Ventricular hypertrophy [Unknown]
  - Tachycardia [Unknown]
  - Hypertension [Unknown]
  - Defect conduction intraventricular [Unknown]
  - Electrocardiogram abnormal [Unknown]

NARRATIVE: CASE EVENT DATE: 20241210
